FAERS Safety Report 23442217 (Version 1)
Quarter: 2024Q1

REPORT INFORMATION
  Report Type: Spontaneous
  Country: US (occurrence: None)
  Receive Date: 20240124
  Receipt Date: 20240124
  Transmission Date: 20240409
  Serious: Yes (Other)
  Sender: FDA-Public Use
  Company Number: None

PATIENT
  Age: 61 Year
  Sex: Female

DRUGS (12)
  1. ADEMPAS [Suspect]
     Active Substance: RIOCIGUAT
     Indication: Pulmonary hypertension
     Dosage: FREQUENCY : 3 TIMES A DAY;?
     Route: 048
     Dates: start: 20230131
  2. WARFARIN [Concomitant]
     Active Substance: WARFARIN
  3. ALBUTEROL SULFATE [Concomitant]
     Active Substance: ALBUTEROL SULFATE
  4. FLONASE [Concomitant]
     Active Substance: FLUTICASONE PROPIONATE
  5. METHOCARBAMOL [Concomitant]
     Active Substance: METHOCARBAMOL
  6. ATORVASTATIN [Concomitant]
     Active Substance: ATORVASTATIN
  7. NORCO [Concomitant]
     Active Substance: ACETAMINOPHEN\HYDROCODONE BITARTRATE
  8. COLACE [Concomitant]
     Active Substance: DOCUSATE SODIUM
  9. RETIN-A [Concomitant]
     Active Substance: TRETINOIN
  10. Temovate top oint [Concomitant]
  11. Lidex top soln [Concomitant]
  12. NIZORAL [Concomitant]
     Active Substance: KETOCONAZOLE

REACTIONS (4)
  - Road traffic accident [None]
  - Neck pain [None]
  - Back pain [None]
  - Tinnitus [None]

NARRATIVE: CASE EVENT DATE: 20231225
